FAERS Safety Report 8480751-2 (Version None)
Quarter: 2012Q3

REPORT INFORMATION
  Report Type: 
  Country: None (occurrence: None)
  Receive Date: 20120702
  Receipt Date: 20120627
  Transmission Date: 20120928
  Serious: Yes (Death, Hospitalization, Other)
  Sender: FDA-Public Use
  Company Number: JP-ELI_LILLY_AND_COMPANY-JP201102001030

PATIENT
  Age: 50 Year
  Sex: Male

DRUGS (2)
  1. GEMZAR [Suspect]
     Indication: PANCREATIC CARCINOMA STAGE IV
     Dosage: 700 MG/M2, OTHER
     Route: 042
  2. GEMZAR [Suspect]
     Dosage: UNK, OTHER
     Route: 042

REACTIONS (7)
  - NEOPLASM PROGRESSION [None]
  - INJECTION SITE REACTION [None]
  - THROMBOCYTOPENIA [None]
  - OESOPHAGEAL HAEMORRHAGE [None]
  - NEUTROPENIA [None]
  - HAEMOGLOBIN DECREASED [None]
  - LEUKOPENIA [None]
